FAERS Safety Report 18587935 (Version 1)
Quarter: 2020Q4

REPORT INFORMATION
  Report Type: Spontaneous
  Country: US (occurrence: US)
  Receive Date: 20201207
  Receipt Date: 20201207
  Transmission Date: 20210114
  Serious: Yes (Other)
  Sender: FDA-Public Use
  Company Number: US-BAYER-2020-261116

PATIENT
  Sex: Male

DRUGS (1)
  1. ACETYLSALICYLIC ACID [Suspect]
     Active Substance: ASPIRIN
     Route: 015

REACTIONS (4)
  - Congenital pulmonary valve disorder [None]
  - Fallot^s tetralogy [None]
  - Congenital arterial malformation [None]
  - Foetal exposure during pregnancy [None]
